FAERS Safety Report 6130776-7 (Version None)
Quarter: 2009Q1

REPORT INFORMATION
  Report Type: 
  Country: None (occurrence: None)
  Receive Date: 20090325
  Receipt Date: 20090320
  Transmission Date: 20090719
  Serious: Yes (Hospitalization)
  Sender: FDA-Public Use
  Company Number: AU-CELGENEUS-008-20785-09020608

PATIENT
  Sex: Male
  Weight: 82 kg

DRUGS (4)
  1. THALIDOMIDE [Suspect]
     Route: 048
     Dates: start: 20090206, end: 20090209
  2. THALIDOMIDE [Suspect]
     Route: 048
     Dates: start: 20090306
  3. AZACITIDINE [Suspect]
     Route: 058
     Dates: start: 20090206, end: 20090209
  4. AZACITIDINE [Suspect]
     Route: 058
     Dates: start: 20090306

REACTIONS (1)
  - INTESTINAL PERFORATION [None]
